FAERS Safety Report 4965673-3 (Version None)
Quarter: 2006Q2

REPORT INFORMATION
  Report Type: 
  Country: None (occurrence: None)
  Receive Date: 20060407
  Receipt Date: 20060327
  Transmission Date: 20061013
  Serious: Yes (Hospitalization)
  Sender: FDA-Public Use
  Company Number: CH-ABBOTT-06P-151-0329112-00

PATIENT
  Age: 57 Year
  Sex: Male

DRUGS (2)
  1. DEPAKENE [Suspect]
     Indication: EPILEPSY
     Route: 048
     Dates: start: 20051201, end: 20060118
  2. DEPAKENE [Suspect]
     Indication: BRAIN NEOPLASM
     Route: 048
     Dates: start: 20051130, end: 20051201

REACTIONS (5)
  - COAGULOPATHY [None]
  - HEMIPARESIS [None]
  - HEPATIC FAILURE [None]
  - MIXED RECEPTIVE-EXPRESSIVE LANGUAGE DISORDER [None]
  - THROMBOCYTOPENIA [None]
